FAERS Safety Report 12603146 (Version 1)
Quarter: 2016Q3

REPORT INFORMATION
  Report Type: Spontaneous
  Country: IT (occurrence: IT)
  Receive Date: 20160728
  Receipt Date: 20160728
  Transmission Date: 20161109
  Serious: Yes (Hospitalization)
  Sender: FDA-Public Use
  Company Number: IT-PFIZER INC-2016361771

PATIENT
  Age: 61 Year
  Sex: Male

DRUGS (1)
  1. VIAGRA [Suspect]
     Active Substance: SILDENAFIL CITRATE
     Indication: ERECTILE DYSFUNCTION
     Dosage: 1 DF, TOTAL
     Route: 048
     Dates: start: 20160721, end: 20160721

REACTIONS (5)
  - Acute coronary syndrome [Recovered/Resolved]
  - Chest pain [Recovered/Resolved]
  - Intentional product misuse [Recovered/Resolved]
  - Hyperhidrosis [Recovered/Resolved]
  - Bradycardia [Recovered/Resolved]

NARRATIVE: CASE EVENT DATE: 20160721
